FAERS Safety Report 4627247-3 (Version None)
Quarter: 2005Q1

REPORT INFORMATION
  Report Type: 
  Country: None (occurrence: None)
  Receive Date: 20050330
  Receipt Date: 20050314
  Transmission Date: 20050727
  Serious: Yes (Hospitalization, Other)
  Sender: FDA-Public Use
  Company Number: USA040155762

PATIENT
  Age: 77 Year
  Sex: Female

DRUGS (5)
  1. FORTEO [Suspect]
     Indication: OSTEOPOROSIS
     Dosage: 20 UG DAY
     Route: 058
     Dates: start: 20030601, end: 20040401
  2. SYNTHROID [Concomitant]
  3. CRESTOR [Concomitant]
  4. PROTONIX [Concomitant]
  5. LIPITOR [Concomitant]

REACTIONS (43)
  - ABDOMINAL BRUIT [None]
  - ABDOMINAL TENDERNESS [None]
  - ANAEMIA [None]
  - ANAEMIA OF CHRONIC DISEASE [None]
  - ANOREXIA [None]
  - ANTIBODY TEST ABNORMAL [None]
  - ARTHRALGIA [None]
  - ASTHENIA [None]
  - AUTOIMMUNE DISORDER [None]
  - BLOOD CALCIUM INCREASED [None]
  - CANDIDIASIS [None]
  - CARDIAC FLUTTER [None]
  - CHEST PAIN [None]
  - CHRONIC OBSTRUCTIVE PULMONARY DISEASE [None]
  - CHRONIC SINUSITIS [None]
  - DEHYDRATION [None]
  - DIARRHOEA [None]
  - DIZZINESS [None]
  - EMOTIONAL DISTRESS [None]
  - ESSENTIAL HYPERTENSION [None]
  - GRANULOMA [None]
  - HEART RATE INCREASED [None]
  - HEART RATE IRREGULAR [None]
  - HEPATIC CYST [None]
  - HYPOTHYROIDISM [None]
  - INJECTION SITE IRRITATION [None]
  - KIDNEY INFECTION [None]
  - LUNG NEOPLASM [None]
  - MUSCLE SPASMS [None]
  - OSTEOPOROSIS [None]
  - PAIN [None]
  - PALPITATIONS [None]
  - PERICARDIAL EFFUSION [None]
  - PERICARDITIS [None]
  - PLEURISY [None]
  - PROTEIN TOTAL INCREASED [None]
  - PYELONEPHRITIS [None]
  - RASH ERYTHEMATOUS [None]
  - RASH MACULAR [None]
  - RENAL FAILURE ACUTE [None]
  - SJOGREN'S SYNDROME [None]
  - SYSTEMIC LUPUS ERYTHEMATOSUS [None]
  - WEIGHT DECREASED [None]
